FAERS Safety Report 18158295 (Version 2)
Quarter: 2021Q1

REPORT INFORMATION
  Report Type: Spontaneous
  Country: US (occurrence: US)
  Receive Date: 20200817
  Receipt Date: 20210127
  Transmission Date: 20210419
  Serious: Yes (Hospitalization, Other)
  Sender: FDA-Public Use
  Company Number: US-PURDUE-USA-2020-0161381

PATIENT
  Sex: Male

DRUGS (3)
  1. OXYCODONE HCL TABLETS (91?490) [Suspect]
     Active Substance: OXYCODONE HYDROCHLORIDE
     Indication: PRODUCT USED FOR UNKNOWN INDICATION
     Dosage: UNK
     Route: 048
  2. OXYCONTIN [Suspect]
     Active Substance: OXYCODONE HYDROCHLORIDE
     Dosage: 180 MG, MONTHLY
     Route: 048
  3. OXYCONTIN [Suspect]
     Active Substance: OXYCODONE HYDROCHLORIDE
     Indication: PRODUCT USED FOR UNKNOWN INDICATION
     Dosage: 120 MG, MONTHLY
     Route: 048

REACTIONS (9)
  - Generalised tonic-clonic seizure [Unknown]
  - Denture wearer [Unknown]
  - Coma [Unknown]
  - Drug withdrawal syndrome [Unknown]
  - Overdose [Unknown]
  - Pain [Unknown]
  - Tooth loss [Unknown]
  - Emotional distress [Unknown]
  - Drug dependence [Unknown]
